FAERS Safety Report 7791700-4 (Version None)
Quarter: 2011Q4

REPORT INFORMATION
  Report Type: 
  Country: None (occurrence: None)
  Receive Date: 20111003
  Receipt Date: 20110929
  Transmission Date: 20120403
  Serious: Yes (Other)
  Sender: FDA-Public Use
  Company Number: IT-BRISTOL-MYERS SQUIBB COMPANY-15920663

PATIENT
  Age: 62 Year
  Sex: Male

DRUGS (8)
  1. LANSOPRAZOLE [Suspect]
     Indication: PROPHYLAXIS AGAINST GASTROINTESTINAL ULCER
     Dosage: INTERRUPTED ON 19JUL11
     Route: 048
     Dates: start: 20060220
  2. LYRICA [Concomitant]
  3. PREDNISONE [Concomitant]
  4. LANSOPRAZOLE [Suspect]
     Indication: RHEUMATOID ARTHRITIS
     Dosage: INTERRUPTED ON 19JUL11
     Route: 048
     Dates: start: 20060220
  5. TENORMIN [Concomitant]
  6. ORENCIA [Suspect]
     Indication: RHEUMATOID ARTHRITIS
     Dosage: INTERRUPTED ON 18JUL11
     Route: 042
     Dates: start: 20101012
  7. ZESTRIL [Concomitant]
  8. COUMADIN [Concomitant]

REACTIONS (2)
  - GYNAECOMASTIA [None]
  - MASTITIS [None]
